FAERS Safety Report 15273075 (Version 1)
Quarter: 2018Q3

REPORT INFORMATION
  Report Type: Spontaneous
  Country: US (occurrence: US)
  Receive Date: 20180813
  Receipt Date: 20180813
  Transmission Date: 20181010
  Serious: No
  Sender: FDA-Public Use
  Company Number: US-PURDUE-USA-2018-0144108

PATIENT
  Sex: Male

DRUGS (1)
  1. BUTRANS [Suspect]
     Active Substance: BUPRENORPHINE
     Indication: SCIATIC NERVE INJURY
     Dosage: 15 MCG/HR, WEEKLY
     Route: 062

REACTIONS (5)
  - Unevaluable event [Unknown]
  - Mood altered [Unknown]
  - Middle insomnia [Unknown]
  - Drug withdrawal syndrome [Unknown]
  - Tremor [Unknown]
